FAERS Safety Report 9575734 (Version 1)
Quarter: 2013Q4

REPORT INFORMATION
  Report Type: Spontaneous
  Country: US (occurrence: US)
  Receive Date: 20131001
  Receipt Date: 20131001
  Transmission Date: 20140711
  Serious: Yes (Other)
  Sender: FDA-Public Use
  Company Number: US-AMGEN-USASP2012045452

PATIENT
  Sex: Female

DRUGS (2)
  1. EPOGEN [Suspect]
     Dosage: UNK
  2. EPOGEN [Suspect]
     Indication: DIALYSIS

REACTIONS (1)
  - Convulsion [Unknown]
